FAERS Safety Report 8556887-4 (Version None)
Quarter: 2012Q3

REPORT INFORMATION
  Report Type: 
  Country: None (occurrence: None)
  Receive Date: 20120801
  Receipt Date: 20120727
  Transmission Date: 20120928
  Serious: Yes (Other)
  Sender: FDA-Public Use
  Company Number: US-PFIZER INC-2012173192

PATIENT
  Sex: Female

DRUGS (1)
  1. PROTONIX [Suspect]
     Indication: PROPHYLAXIS
     Dosage: 40 MG, DAILY
     Dates: start: 20120714

REACTIONS (1)
  - HYPERNATRAEMIA [None]
